FAERS Safety Report 5255994-1 (Version None)
Quarter: 2007Q1

REPORT INFORMATION
  Report Type: 
  Country: None (occurrence: None)
  Receive Date: 20070302
  Receipt Date: 20070302
  Transmission Date: 20070707
  Serious: No
  Sender: FDA-Public Use
  Company Number: None

PATIENT
  Age: 52 Year
  Sex: Female
  Weight: 108 kg

DRUGS (1)
  1. MAGNEVIST [Suspect]
     Indication: DIAGNOSTIC PROCEDURE
     Dosage: 20 ML ONCE IV
     Route: 042
     Dates: start: 20070227

REACTIONS (3)
  - CYANOSIS [None]
  - INFUSION RELATED REACTION [None]
  - WHEEZING [None]
